FAERS Safety Report 22608751 (Version 1)
Quarter: 2023Q2

REPORT INFORMATION
  Report Type: Spontaneous
  Country: US (occurrence: US)
  Receive Date: 20230616
  Receipt Date: 20230616
  Transmission Date: 20230722
  Serious: No
  Sender: FDA-Public Use
  Company Number: US-BRISTOL-MYERS SQUIBB COMPANY-2023-085139

PATIENT
  Age: 81 Year
  Sex: Female
  Weight: 61.23 kg

DRUGS (1)
  1. REVLIMID [Suspect]
     Active Substance: LENALIDOMIDE
     Indication: Non-Hodgkin^s lymphoma
     Dosage: 21D ON 7D OFF
     Route: 048
     Dates: start: 20230401

REACTIONS (4)
  - Pruritus [Unknown]
  - Eye swelling [Unknown]
  - Diarrhoea [Unknown]
  - Ocular hyperaemia [Unknown]
